FAERS Safety Report 6198306-1 (Version None)
Quarter: 2009Q2

REPORT INFORMATION
  Report Type: 
  Country: None (occurrence: None)
  Receive Date: 20090521
  Receipt Date: 20090511
  Transmission Date: 20091009
  Serious: Yes (Life-Threatening, Hospitalization, Other)
  Sender: FDA-Public Use
  Company Number: AT-ELI_LILLY_AND_COMPANY-AT200905002157

PATIENT
  Age: 38 Year
  Sex: Female

DRUGS (15)
  1. CYMBALTA [Suspect]
     Indication: DEPRESSION
     Dosage: 30 MG, DAILY (1/D)
     Dates: start: 20081229, end: 20090124
  2. CYMBALTA [Suspect]
     Dosage: 60 MG, DAILY (1/D)
     Dates: start: 20090124, end: 20090330
  3. DOMINAL FORTE [Concomitant]
     Dosage: 80 MG, DAILY (1/D)
     Dates: start: 20081229, end: 20090330
  4. DOMINAL FORTE [Concomitant]
     Dosage: 80 MG, UNKNOWN
     Route: 065
     Dates: start: 20090403
  5. CONVULEX [Concomitant]
     Dosage: 600 MG DAILY
     Dates: start: 20090112, end: 20090123
  6. CONVULEX [Concomitant]
     Dosage: 900 MG, UNKNOWN
     Dates: start: 20090124, end: 20090125
  7. CONVULEX [Concomitant]
     Dosage: 1200 MG, UNKNOWN
     Dates: start: 20090126, end: 20090330
  8. PSYCHOPAX [Concomitant]
     Dosage: 15 MG, DAILY (1/D)
     Dates: start: 20090121, end: 20090330
  9. PASSEDAN [Concomitant]
     Dosage: 40GTT DAILY (1/D)
     Dates: start: 20090129, end: 20090330
  10. PANTOLOC                           /01263201/ [Concomitant]
     Dosage: 40 MG, UNKNOWN
     Route: 065
     Dates: start: 20090403
  11. AUGMENTIN                               /SCH/ [Concomitant]
     Dosage: 6600 MG, UNKNOWN
     Route: 065
     Dates: start: 20090331, end: 20090409
  12. ANAEROBEX [Concomitant]
     Dosage: 1500 MG, UNK
     Dates: start: 20090405, end: 20090409
  13. LOVENOX [Concomitant]
     Dosage: 40 MG, UNK
     Dates: start: 20090403, end: 20090410
  14. HUMAN ALBUMIN                      /01102501/ [Concomitant]
     Dosage: 100 ML (20 % 100MG) UNK
     Dates: start: 20090403, end: 20090406
  15. RISPERDAL [Concomitant]
     Dosage: 37.5MG/14TAGIG, UNKNOWN
     Route: 065
     Dates: start: 20090422

REACTIONS (14)
  - BLOOD PRESSURE INCREASED [None]
  - DIZZINESS [None]
  - FEELING ABNORMAL [None]
  - HYPONATRAEMIA [None]
  - HYPOPROTEINAEMIA [None]
  - INFECTION [None]
  - LEUKOPENIA [None]
  - OXYGEN SATURATION DECREASED [None]
  - PNEUMONIA ASPIRATION [None]
  - POLYDIPSIA [None]
  - POLYURIA [None]
  - SOMNOLENCE [None]
  - TONIC CLONIC MOVEMENTS [None]
  - VOMITING [None]
